FAERS Safety Report 4654358-9 (Version None)
Quarter: 2005Q2

REPORT INFORMATION
  Report Type: 
  Country: None (occurrence: None)
  Receive Date: 20050404
  Receipt Date: 20041228
  Transmission Date: 20051028
  Serious: No
  Sender: FDA-Public Use
  Company Number: USA041287039

PATIENT
  Age: 58 Year
  Sex: Female
  Weight: 66 kg

DRUGS (8)
  1. CYMBALTA [Suspect]
     Indication: DEPRESSION
     Dosage: 60 MG DAY
     Dates: start: 20041001
  2. PROZAC [Suspect]
  3. AVAPRO [Concomitant]
  4. LIPITOR [Concomitant]
  5. GEMFIBROZIL [Concomitant]
  6. CLIMARA [Concomitant]
  7. ASPIRIN [Concomitant]
  8. PRILOSEC (OMEPRAZOLE RATIOPHARM) [Concomitant]

REACTIONS (3)
  - DYSPEPSIA [None]
  - OESOPHAGEAL DISCOMFORT [None]
  - PSYCHOMOTOR HYPERACTIVITY [None]
